FAERS Safety Report 11856999 (Version 1)
Quarter: 2015Q4

REPORT INFORMATION
  Report Type: Spontaneous
  Country: IT (occurrence: IT)
  Receive Date: 20151221
  Receipt Date: 20151221
  Transmission Date: 20160305
  Serious: Yes (Hospitalization)
  Sender: FDA-Public Use
  Company Number: IT-SA-2015SA212799

PATIENT
  Age: 92 Year
  Sex: Female

DRUGS (5)
  1. LANOXIN [Concomitant]
     Active Substance: DIGOXIN
  2. NITRODERM [Concomitant]
     Active Substance: NITROGLYCERIN
  3. OMERIA [Concomitant]
  4. CLEXANE [Suspect]
     Active Substance: ENOXAPARIN SODIUM
     Indication: ANTICOAGULANT THERAPY
     Route: 058
     Dates: start: 20151009, end: 20151016
  5. COUMADIN [Concomitant]
     Active Substance: WARFARIN SODIUM
     Indication: ORTHODONTIC PROCEDURE

REACTIONS (1)
  - Melaena [Unknown]

NARRATIVE: CASE EVENT DATE: 20151016
